FAERS Safety Report 5373764-0 (Version None)
Quarter: 2007Q2

REPORT INFORMATION
  Report Type: 
  Country: None (occurrence: None)
  Receive Date: 20070628
  Receipt Date: 20070619
  Transmission Date: 20071010
  Serious: Yes (Other)
  Sender: FDA-Public Use
  Company Number: US-ROCHE-495933

PATIENT
  Sex: Female

DRUGS (1)
  1. XENICAL [Suspect]
     Indication: DRUG USE FOR UNKNOWN INDICATION
     Route: 065
     Dates: start: 20000101

REACTIONS (6)
  - ANOREXIA [None]
  - DIABETES MELLITUS [None]
  - HYPERTENSION [None]
  - THYROID DISORDER [None]
  - VOMITING [None]
  - WEIGHT INCREASED [None]
